FAERS Safety Report 6643215-4 (Version None)
Quarter: 2010Q1

REPORT INFORMATION
  Report Type: 
  Country: None (occurrence: None)
  Receive Date: 20100319
  Receipt Date: 20100316
  Transmission Date: 20100710
  Serious: Yes (Death)
  Sender: FDA-Public Use
  Company Number: PHHY2010JP16171

PATIENT
  Age: 54 Year
  Sex: Female

DRUGS (5)
  1. CYCLOSPORINE [Suspect]
     Indication: INTERSTITIAL LUNG DISEASE
     Route: 048
  2. CYCLOSPORINE [Suspect]
     Route: 042
  3. PREDONINE [Concomitant]
     Indication: BEHCET'S SYNDROME
     Dosage: 30 MG, UNK
     Route: 048
  4. PREDONINE [Concomitant]
     Dosage: 20 MG, UNK
     Route: 048
  5. SALAZOPYRIN [Concomitant]
     Indication: BEHCET'S SYNDROME
     Route: 048

REACTIONS (1)
  - SYSTEMIC MYCOSIS [None]
